FAERS Safety Report 8894584 (Version 1)
Quarter: 2012Q4

REPORT INFORMATION
  Report Type: 
  Country: GB (occurrence: GB)
  Receive Date: 20121108
  Receipt Date: 20121108
  Transmission Date: 20130627
  Serious: Yes (Disabling, Other)
  Sender: FDA-Public Use
  Company Number: GB-009507513-1211GBR000555

PATIENT
  Sex: Male

DRUGS (4)
  1. FINASTERIDE [Suspect]
     Indication: ANDROGENETIC ALOPECIA
     Dosage: 1 mg, qd
     Route: 048
     Dates: start: 2000, end: 201110
  2. LYMECYCLINE [Concomitant]
  3. PAROXETINE [Concomitant]
  4. VENLAFAXINE HYDROCHLORIDE [Concomitant]

REACTIONS (10)
  - Connective tissue disorder [Unknown]
  - Sexual dysfunction [Not Recovered/Not Resolved]
  - Facial wasting [Not Recovered/Not Resolved]
  - Facial pain [Unknown]
  - Penile size reduced [Not Recovered/Not Resolved]
  - Skin atrophy [Not Recovered/Not Resolved]
  - Skin wrinkling [Not Recovered/Not Resolved]
  - Suicidal ideation [Unknown]
  - Weight decreased [Recovered/Resolved]
  - Withdrawal syndrome [Unknown]
